FAERS Safety Report 15697386 (Version 1)
Quarter: 2018Q4

REPORT INFORMATION
  Report Type: Spontaneous
  Country: GB (occurrence: GB)
  Receive Date: 20181207
  Receipt Date: 20181207
  Transmission Date: 20190205
  Serious: Yes (Other)
  Sender: FDA-Public Use
  Company Number: GB-TEVA-2018-GB-982885

PATIENT
  Age: 73 Year
  Sex: Male
  Weight: 111 kg

DRUGS (12)
  1. IBUPROFEN. [Concomitant]
     Active Substance: IBUPROFEN
  2. FUROSEMIDE. [Concomitant]
     Active Substance: FUROSEMIDE
  3. PARACETAMOL [Concomitant]
     Active Substance: ACETAMINOPHEN
  4. IRBESARTAN HYDROCHLORIDE [Suspect]
     Active Substance: IRBESARTAN
     Indication: ESSENTIAL HYPERTENSION
     Dosage: 300MG/25MG
     Route: 048
     Dates: start: 20090212, end: 20181107
  5. CLOPIDOGREL [Concomitant]
     Active Substance: CLOPIDOGREL BISULFATE
  6. CO-BENELDOPA [Concomitant]
     Active Substance: BENSERAZIDE HYDROCHLORIDE\LEVODOPA
  7. ATORVASTATIN [Concomitant]
     Active Substance: ATORVASTATIN
  8. EPILIM [Concomitant]
     Active Substance: VALPROATE SODIUM
  9. AMLODIPINE [Concomitant]
     Active Substance: AMLODIPINE BESYLATE
  10. BEZAFIBRATE [Concomitant]
     Active Substance: BEZAFIBRATE
  11. CO-CARELDOPA [Concomitant]
     Active Substance: CARBIDOPA\LEVODOPA
  12. ACCRETE D3 [Concomitant]

REACTIONS (1)
  - Squamous cell carcinoma of skin [Recovering/Resolving]
